FAERS Safety Report 17473143 (Version 1)
Quarter: 2020Q1

REPORT INFORMATION
  Report Type: Spontaneous
  Country: FR (occurrence: FR)
  Receive Date: 20200228
  Receipt Date: 20200228
  Transmission Date: 20200409
  Serious: Yes (Hospitalization)
  Sender: FDA-Public Use
  Company Number: NVSC2020FR049983

PATIENT
  Age: 51 Year
  Sex: Female

DRUGS (10)
  1. LOXAPAC [Concomitant]
     Active Substance: LOXAPINE
     Indication: PSYCHOTIC DISORDER
     Dosage: 25 MG, QD (0-0-0.5)
     Route: 048
  2. SULFARLEM CHOLINE [Concomitant]
     Indication: DRY MOUTH
     Dosage: 100 MG, QD (2-0-2)
     Route: 048
  3. PARACETAMOL [Suspect]
     Active Substance: ACETAMINOPHEN
     Indication: SUICIDE ATTEMPT
     Dosage: 10 G, TOTAL
     Route: 048
     Dates: start: 20190509, end: 20190509
  4. NICOPATCH [Concomitant]
     Active Substance: NICOTINE
     Indication: EX-TOBACCO USER
     Dosage: (NON RENSEIGNEE)
     Route: 048
  5. CLOPIXOL [Concomitant]
     Active Substance: ZUCLOPENTHIXOL
     Dosage: 75 MG, QD (0-0-3) STRENGTH 25 MG
     Route: 065
  6. LOXAPINE. [Concomitant]
     Active Substance: LOXAPINE
     Indication: PSYCHOTIC DISORDER
     Dosage: 375 MG, QD (0-0-15 (GOUTTES)
     Route: 048
  7. PANTOPRAZOLE [Concomitant]
     Active Substance: PANTOPRAZOLE
     Indication: GASTROINTESTINAL DISORDER PROPHYLAXIS
     Dosage: 40 MG, QD (0-0-1)
     Route: 048
  8. LEVETIRACETAM. [Concomitant]
     Active Substance: LEVETIRACETAM
     Indication: EPILEPSY
     Dosage: 2000 MG, QD (2-0-2)
     Route: 048
  9. PARKINANE LP [Concomitant]
     Active Substance: TRIHEXYPHENIDYL HYDROCHLORIDE
     Indication: PARKINSONISM
     Dosage: 10 MG, QD (1-0-1)
     Route: 048
  10. CLOPIXOL [Concomitant]
     Active Substance: ZUCLOPENTHIXOL
     Indication: PSYCHOTIC DISORDER
     Dosage: 20 MG, QD (0-0-2)
     Route: 048

REACTIONS (4)
  - Poisoning deliberate [Recovered/Resolved]
  - Abdominal pain [Recovered/Resolved]
  - Intentional overdose [Recovered/Resolved]
  - Headache [Recovered/Resolved]

NARRATIVE: CASE EVENT DATE: 20190509
